FAERS Safety Report 7568644-6 (Version None)
Quarter: 2011Q2

REPORT INFORMATION
  Report Type: 
  Country: None (occurrence: None)
  Receive Date: 20110623
  Receipt Date: 20110615
  Transmission Date: 20111010
  Serious: Yes (Other)
  Sender: FDA-Public Use
  Company Number: US-JNJFOC-20110608555

PATIENT
  Sex: Female
  Weight: 59.88 kg

DRUGS (2)
  1. LEVAQUIN [Suspect]
     Indication: PNEUMONIA BACTERIAL
     Route: 042
     Dates: start: 20090401
  2. LEVAQUIN [Suspect]
     Indication: PSEUDOMONAS INFECTION
     Route: 048
     Dates: start: 20110506

REACTIONS (5)
  - PARAESTHESIA [None]
  - HYPOAESTHESIA [None]
  - RASH [None]
  - LUNG INFECTION [None]
  - PERIPHERAL COLDNESS [None]
